FAERS Safety Report 9384236 (Version 1)
Quarter: 2013Q3

REPORT INFORMATION
  Report Type: Spontaneous
  Country: US (occurrence: None)
  Receive Date: 20130702
  Receipt Date: 20130702
  Transmission Date: 20140515
  Serious: Yes (Disabling, Other)
  Sender: FDA-Public Use
  Company Number: None

PATIENT
  Age: 54 Year
  Sex: Female

DRUGS (9)
  1. OZURDEX [Suspect]
     Indication: BIRDSHOT CHORIORETINOPATHY
     Dates: start: 20130404, end: 20130404
  2. HUMULIN NPH INSULIN [Concomitant]
  3. HUMALOG [Concomitant]
  4. CALCIUM [Concomitant]
  5. VITAMIN D [Concomitant]
  6. ASPIRIN [Concomitant]
  7. LISINOPRIL [Concomitant]
  8. PRAVASTATIN [Concomitant]
  9. CELLCEPT [Concomitant]

REACTIONS (3)
  - Visual acuity reduced [None]
  - Photopsia [None]
  - Implant site reaction [None]
